FAERS Safety Report 18283592 (Version 2)
Quarter: 2020Q3

REPORT INFORMATION
  Report Type: Report from Study
  Country: PK (occurrence: PK)
  Receive Date: 20200918
  Receipt Date: 20200925
  Transmission Date: 20201103
  Serious: Yes (Death, Hospitalization)
  Sender: FDA-Public Use
  Company Number: NVSC2020PK254864

PATIENT
  Age: 67 Year
  Sex: Female

DRUGS (1)
  1. GALVUS MET [Suspect]
     Active Substance: METFORMIN HYDROCHLORIDE\VILDAGLIPTIN
     Indication: DIABETES MELLITUS
     Dosage: 1 DF, BID
     Route: 048
     Dates: start: 20180111, end: 201910

REACTIONS (3)
  - Pancreatic carcinoma [Fatal]
  - Jaundice [Fatal]
  - Nausea [Fatal]

NARRATIVE: CASE EVENT DATE: 201910
